FAERS Safety Report 6592873-1 (Version None)
Quarter: 2010Q1

REPORT INFORMATION
  Report Type: 
  Country: None (occurrence: None)
  Receive Date: 20100205
  Receipt Date: 20100125
  Transmission Date: 20100710
  Serious: Yes (Other)
  Sender: FDA-Public Use
  Company Number: B0630621A

PATIENT
  Sex: 0

DRUGS (1)
  1. LAMOTRIGINE [Suspect]
     Indication: TEMPORAL LOBE EPILEPSY

REACTIONS (4)
  - CENTRAL NERVOUS SYSTEM LESION [None]
  - DRUG LEVEL FLUCTUATING [None]
  - DRUG WITHDRAWAL SYNDROME [None]
  - FLUID IMBALANCE [None]
